FAERS Safety Report 12932888 (Version 1)
Quarter: 2016Q4

REPORT INFORMATION
  Report Type: Spontaneous
  Country: US (occurrence: US)
  Receive Date: 20161111
  Receipt Date: 20161111
  Transmission Date: 20170207
  Serious: Yes (Hospitalization, Other)
  Sender: FDA-Public Use
  Company Number: US-BAYER-2016-211420

PATIENT
  Age: 72 Year
  Sex: Male
  Weight: 97.52 kg

DRUGS (10)
  1. ALLOPURINOL. [Concomitant]
     Active Substance: ALLOPURINOL
  2. BAYER LOW DOSE [Interacting]
     Active Substance: ASPIRIN
     Indication: THROMBOSIS PROPHYLAXIS
     Dosage: UNK
     Route: 065
     Dates: start: 2015, end: 20161002
  3. CIPROFLOXACIN. [Suspect]
     Active Substance: CIPROFLOXACIN
     Dosage: UNK
  4. SIMVASTATIN. [Concomitant]
     Active Substance: SIMVASTATIN
  5. ZOMETA [Concomitant]
     Active Substance: ZOLEDRONIC ACID
  6. COUMADIN [Interacting]
     Active Substance: WARFARIN SODIUM
     Indication: COAGULOPATHY
     Dosage: UNK
     Dates: end: 20161002
  7. METOPROLOL. [Concomitant]
     Active Substance: METOPROLOL
  8. PROBENECID. [Concomitant]
     Active Substance: PROBENECID
  9. SUTENT [Concomitant]
     Active Substance: SUNITINIB MALATE
     Indication: SUPPORTIVE CARE
     Dosage: UNK
     Dates: start: 2016, end: 20161002
  10. METFORMIN [Concomitant]
     Active Substance: METFORMIN HYDROCHLORIDE
     Indication: DIABETES MELLITUS
     Dosage: UNK
     Dates: start: 2014, end: 20161002

REACTIONS (9)
  - Haemorrhage [Unknown]
  - Drug hypersensitivity [None]
  - Headache [Recovered/Resolved]
  - Drug administration error [Recovered/Resolved]
  - Nephrectomy [None]
  - Labelled drug-drug interaction medication error [Recovered/Resolved]
  - Weight decreased [None]
  - Blood urine present [Recovered/Resolved]
  - Epistaxis [Recovered/Resolved]

NARRATIVE: CASE EVENT DATE: 20160925
